FAERS Safety Report 12523222 (Version 1)
Quarter: 2016Q3

REPORT INFORMATION
  Report Type: Report from Study
  Country: CH (occurrence: CH)
  Receive Date: 20160702
  Receipt Date: 20160702
  Transmission Date: 20161109
  Serious: Yes (Hospitalization)
  Sender: FDA-Public Use
  Company Number: CH-AMGEN-CHECT2016069958

PATIENT
  Age: 71 Year
  Sex: Male
  Weight: 93 kg

DRUGS (14)
  1. TALIMOGENE LAHERPAREPVEC [Suspect]
     Active Substance: TALIMOGENE LAHERPAREPVEC
     Indication: SQUAMOUS CELL CARCINOMA OF HEAD AND NECK
     Dosage: 2 ML, Q3WK
     Route: 026
     Dates: start: 20160517
  2. ATORVASTATIN [Concomitant]
     Active Substance: ATORVASTATIN
     Dosage: 20 MG, UNK
     Route: 048
     Dates: start: 2010
  3. NACL [Concomitant]
     Active Substance: SODIUM CHLORIDE
     Dosage: 500 ML-1 UNK, UNK
     Dates: start: 20150801, end: 20160528
  4. MYCOSTATIN [Concomitant]
     Active Substance: NYSTATIN
     Dosage: 1 UNK, UNK
     Route: 048
     Dates: start: 201603
  5. PEMBROLIZUMAB. [Suspect]
     Active Substance: PEMBROLIZUMAB
     Indication: SQUAMOUS CELL CARCINOMA OF HEAD AND NECK
     Dosage: 200 MG, Q3WK
     Route: 042
     Dates: start: 20160517
  6. PRADIF [Concomitant]
     Active Substance: TAMSULOSIN HYDROCHLORIDE
     Dosage: 0.4 MG, UNK
     Route: 048
     Dates: start: 2004
  7. MOVICOL [Concomitant]
     Active Substance: POLYETHYLENE GLYCOL 3350\POTASSIUM CHLORIDE\SODIUM BICARBONATE\SODIUM CHLORIDE
     Dosage: 1 UNK, UNK
     Route: 048
     Dates: start: 201603, end: 20160607
  8. XYLOCAINE [Concomitant]
     Active Substance: LIDOCAINE HYDROCHLORIDE
     Dosage: 1 UNK, UNK
     Route: 061
     Dates: start: 201603, end: 20160527
  9. CORDARONE [Concomitant]
     Active Substance: AMIODARONE HYDROCHLORIDE
     Dosage: 200 MG, UNK
     Route: 048
     Dates: start: 2007
  10. TRAMADOL. [Concomitant]
     Active Substance: TRAMADOL
     Dosage: 15-20 GTT, UNK
     Route: 048
     Dates: start: 201603, end: 20160527
  11. DAFALGAN [Concomitant]
     Active Substance: ACETAMINOPHEN
     Dosage: 1 G, UNK
     Route: 048
     Dates: start: 20160518
  12. FINASTERID [Concomitant]
     Dosage: 5 MG, UNK
     Route: 048
     Dates: start: 2004
  13. SINTROM [Concomitant]
     Active Substance: ACENOCOUMAROL
     Dosage: 1 MG, UNK
     Route: 048
     Dates: start: 2004
  14. OCTENISEPT [Concomitant]
     Active Substance: OCTENIDINE\PHENOXYETHANOL
     Dosage: 1 UNK, UNK
     Route: 061
     Dates: start: 201508

REACTIONS (1)
  - Odynophagia [Recovered/Resolved]

NARRATIVE: CASE EVENT DATE: 20160528
